FAERS Safety Report 4806641-1 (Version None)
Quarter: 2005Q4

REPORT INFORMATION
  Report Type: 
  Country: None (occurrence: None)
  Receive Date: 20051019
  Receipt Date: 20051004
  Transmission Date: 20060501
  Serious: Yes (Other)
  Sender: FDA-Public Use
  Company Number: USA0510110187

PATIENT
  Sex: Female

DRUGS (1)
  1. GEMZAR [Suspect]
     Indication: BREAST CANCER METASTATIC
     Dosage: 1000 MG/M2
     Dates: start: 20050916

REACTIONS (4)
  - ASCITES [None]
  - FLUID RETENTION [None]
  - GRAVITATIONAL OEDEMA [None]
  - OEDEMA PERIPHERAL [None]
